FAERS Safety Report 5032029-7 (Version None)
Quarter: 2006Q2

REPORT INFORMATION
  Report Type: 
  Country: None (occurrence: None)
  Receive Date: 20060616
  Receipt Date: 20060605
  Transmission Date: 20061013
  Serious: Yes (Other)
  Sender: FDA-Public Use
  Company Number: CHNY2006CA01758

PATIENT
  Age: 15 Month
  Sex: Female
  Weight: 7.9 kg

DRUGS (1)
  1. TRIAMINIC COLD COUGH AND FEVER BUBBLE GUM FLAVOUR (NCH) (ACETAMINOPHEN [Suspect]
     Indication: PYREXIA
     Dosage: 3 ML BID, ORAL
     Route: 048
     Dates: start: 20060602, end: 20060602

REACTIONS (1)
  - CONVULSION [None]
